FAERS Safety Report 25649994 (Version 1)
Quarter: 2025Q3

REPORT INFORMATION
  Report Type: Other
  Country: US (occurrence: US)
  Receive Date: 20250806
  Receipt Date: 20250806
  Transmission Date: 20251021
  Serious: Yes (Other)
  Sender: ODIN PHARMACEUTICALS
  Company Number: USA--2025-US-000345

PATIENT
  Age: 81 Year
  Sex: Female

DRUGS (3)
  1. DEXAMETHASONE SODIUM PHOSPHATE [Suspect]
     Active Substance: DEXAMETHASONE SODIUM PHOSPHATE
     Indication: Brain radiation necrosis
     Dosage: DECREASED TO 2 MG AND AGAIN THE DOSE WAS INCREASED TO 6 MG TWICE A DAY
     Route: 065
  2. TEMOZOLOMIDE [Concomitant]
     Active Substance: TEMOZOLOMIDE
     Indication: Glioblastoma
     Route: 065
  3. BEVACIZUMAB [Concomitant]
     Active Substance: BEVACIZUMAB
     Indication: Brain radiation necrosis
     Route: 065

REACTIONS (3)
  - Product use in unapproved indication [Unknown]
  - Radiation necrosis [Unknown]
  - Rebound effect [Unknown]
